FAERS Safety Report 8091644 (Version 2)
Quarter: 2013Q2

REPORT INFORMATION
  Report Type: Spontaneous
  Country: US (occurrence: US)
  Receive Date: 20110816
  Receipt Date: 20130628
  Transmission Date: 20140414
  Serious: No
  Sender: FDA-Public Use
  Company Number: US-BAYER-201041152NA

PATIENT
  Age: 26 Year
  Sex: Female

DRUGS (1)
  1. MIRENA [Suspect]
     Indication: CONTRACEPTION
     Dosage: 20 MCG/24HR, CONT
     Route: 015
     Dates: start: 20100701, end: 20101104

REACTIONS (6)
  - Back pain [Unknown]
  - Mood swings [Unknown]
  - Fatigue [Unknown]
  - Weight increased [Unknown]
  - Abdominal distension [None]
  - Dyspareunia [None]
